FAERS Safety Report 15718372 (Version 1)
Quarter: 2018Q4

REPORT INFORMATION
  Report Type: Spontaneous
  Country: AX (occurrence: AX)
  Receive Date: 20181213
  Receipt Date: 20181213
  Transmission Date: 20190205
  Serious: Yes (Other)
  Sender: FDA-Public Use
  Company Number: None

PATIENT
  Age: 61 Year
  Sex: Male
  Weight: 79.2 kg

DRUGS (7)
  1. OXYBUTYNIN CHLORIDE. [Concomitant]
     Active Substance: OXYBUTYNIN CHLORIDE
  2. CIALIS [Concomitant]
     Active Substance: TADALAFIL
  3. GABAPENTIN. [Concomitant]
     Active Substance: GABAPENTIN
  4. PREDNISONE. [Concomitant]
     Active Substance: PREDNISONE
  5. VERAPAMIL ER [Concomitant]
     Active Substance: VERAPAMIL HYDROCHLORIDE
  6. ABIRATERONE ACETATE. [Suspect]
     Active Substance: ABIRATERONE ACETATE
     Indication: PROSTATE CANCER
     Route: 048
     Dates: start: 20151007
  7. COLCHICINE. [Concomitant]
     Active Substance: COLCHICINE

REACTIONS (1)
  - Visual impairment [None]

NARRATIVE: CASE EVENT DATE: 20181213
